FAERS Safety Report 6963860-6 (Version None)
Quarter: 2010Q3

REPORT INFORMATION
  Report Type: 
  Country: None (occurrence: None)
  Receive Date: 20100902
  Receipt Date: 20100827
  Transmission Date: 20110219
  Serious: Yes (Hospitalization, Other)
  Sender: FDA-Public Use
  Company Number: PHHO2010CA02214

PATIENT
  Sex: Male
  Weight: 83.8 kg

DRUGS (3)
  1. AFINITOR [Suspect]
     Indication: METASTATIC RENAL CELL CARCINOMA
     Dosage: 10 MG
     Dates: start: 20100112, end: 20100118
  2. FENTANYL CITRATE [Suspect]
     Indication: PAIN
     Dosage: UNK
     Route: 061
     Dates: end: 20100202
  3. ALLOPURINOL [Concomitant]

REACTIONS (5)
  - CEREBRAL ATROPHY [None]
  - CONFUSIONAL STATE [None]
  - COUGH [None]
  - EPISTAXIS [None]
  - PNEUMONIA [None]
